FAERS Safety Report 14586356 (Version 1)
Quarter: 2018Q1

REPORT INFORMATION
  Report Type: Spontaneous
  Country: US (occurrence: US)
  Receive Date: 20180301
  Receipt Date: 20180301
  Transmission Date: 20180509
  Serious: Yes (Other)
  Sender: FDA-Public Use
  Company Number: US-BAYER-2018-039460

PATIENT
  Age: 77 Year
  Sex: Female

DRUGS (16)
  1. PRESERVISION EYE VITAMIN AND MINERAL SUPPL. [Concomitant]
     Indication: MACULAR DEGENERATION
     Dosage: UNK
  2. ARIPIPRAZOLE. [Concomitant]
     Active Substance: ARIPIPRAZOLE
     Indication: DEPRESSION
     Dosage: 2 MG, QD
     Route: 048
  3. MULTIVITAMIN [Concomitant]
     Active Substance: VITAMINS
     Indication: VITAMIN SUPPLEMENTATION
     Dosage: 1 DF, QD
     Route: 048
  4. FISH OIL [Concomitant]
     Active Substance: FISH OIL
     Dosage: 1200 MG, QD
     Route: 048
  5. LISINOPRIL. [Concomitant]
     Active Substance: LISINOPRIL
     Indication: HYPERTENSION
     Dosage: 20 MG, QD
     Route: 048
     Dates: start: 2017
  6. PREDNESOL [PREDNISOLONE ACETATE] [Concomitant]
     Indication: INFLAMMATION
     Dosage: 1 MG, QD
  7. VITAMIN D3 [Concomitant]
     Active Substance: CHOLECALCIFEROL
     Dosage: 3000 MG, QD
     Route: 048
     Dates: start: 2017
  8. BAYER LOW DOSE [Suspect]
     Active Substance: ASPIRIN
     Dosage: 81 MG, QD
     Route: 048
     Dates: end: 2017
  9. GABAPENTIN. [Concomitant]
     Active Substance: GABAPENTIN
     Indication: PARAESTHESIA
  10. CALCIUM [Concomitant]
     Active Substance: CALCIUM
     Indication: MINERAL SUPPLEMENTATION
     Dosage: UNK
  11. GENISTEIN [Suspect]
     Active Substance: GENISTEIN
     Indication: ARTHRITIS
     Dosage: 1000 MG, QD
     Route: 048
  12. PREDNESOL [PREDNISOLONE ACETATE] [Concomitant]
     Indication: RHEUMATOID ARTHRITIS
     Dosage: 2 MG, QD
  13. GABAPENTIN. [Concomitant]
     Active Substance: GABAPENTIN
     Indication: HYPOAESTHESIA
     Dosage: 100 MG, HS
  14. GABAPENTIN. [Concomitant]
     Active Substance: GABAPENTIN
     Indication: NEUROPATHY PERIPHERAL
  15. FOLIC ACID. [Concomitant]
     Active Substance: FOLIC ACID
     Indication: MEMORY IMPAIRMENT
     Dosage: 400 MG, QD
     Route: 048
     Dates: start: 2004
  16. AMLODIPINE [Concomitant]
     Active Substance: AMLODIPINE BESYLATE
     Indication: HYPERTENSION
     Dosage: 25 MG, QD
     Route: 048
     Dates: start: 2018

REACTIONS (2)
  - Haematochezia [Recovered/Resolved]
  - Drug dose omission [None]

NARRATIVE: CASE EVENT DATE: 2017
